FAERS Safety Report 5566275-0 (Version None)
Quarter: 2007Q4

REPORT INFORMATION
  Report Type: 
  Country: None (occurrence: None)
  Receive Date: 20071213
  Receipt Date: 20071213
  Transmission Date: 20080405
  Serious: Yes (Hospitalization)
  Sender: FDA-Public Use
  Company Number: None

PATIENT
  Age: 63 Year
  Sex: Male

DRUGS (2)
  1. CARBOPLATIN [Suspect]
     Indication: NEOPLASM MALIGNANT
     Dosage: 440MG ONCE IV
     Route: 042
     Dates: start: 20071127, end: 20071127
  2. DOCETAXEL [Suspect]
     Dosage: 140MG ONCE IV
     Route: 042
     Dates: start: 20071127, end: 20071127

REACTIONS (1)
  - FEBRILE NEUTROPENIA [None]
